FAERS Safety Report 11414807 (Version 3)
Quarter: 2015Q4

REPORT INFORMATION
  Report Type: Report from Study
  Country: US (occurrence: US)
  Receive Date: 20150825
  Receipt Date: 20151228
  Transmission Date: 20160304
  Serious: No
  Sender: FDA-Public Use
  Company Number: US-AMGEN-USASP2015084594

PATIENT
  Age: 59 Year
  Sex: Female

DRUGS (2)
  1. ENBREL [Suspect]
     Active Substance: ETANERCEPT
     Indication: RHEUMATOID ARTHRITIS
     Dosage: 50 MG, QWK
     Route: 065
     Dates: start: 20150617, end: 2015
  2. ENBREL [Suspect]
     Active Substance: ETANERCEPT
     Dosage: UNK
     Route: 065
     Dates: start: 20150903, end: 2015

REACTIONS (12)
  - Feeling cold [Unknown]
  - Sinusitis [Unknown]
  - Neck pain [Not Recovered/Not Resolved]
  - Macule [Not Recovered/Not Resolved]
  - Malaise [Unknown]
  - Herpes zoster [Unknown]
  - Tenderness [Not Recovered/Not Resolved]
  - Pyrexia [Recovering/Resolving]
  - Nasal congestion [Unknown]
  - Paranasal sinus hypersecretion [Unknown]
  - Headache [Unknown]
  - Upper respiratory tract infection [Unknown]

NARRATIVE: CASE EVENT DATE: 2015
